FAERS Safety Report 11101556 (Version 1)
Quarter: 2015Q2

REPORT INFORMATION
  Report Type: Spontaneous
  Country: US (occurrence: US)
  Receive Date: 20150508
  Receipt Date: 20150508
  Transmission Date: 20150821
  Serious: Yes (Other)
  Sender: FDA-Public Use
  Company Number: US-CELGENE-USA-2015046596

PATIENT
  Age: 57 Year
  Sex: Female
  Weight: 46.3 kg

DRUGS (1)
  1. REVLIMID [Suspect]
     Active Substance: LENALIDOMIDE
     Indication: PLASMA CELL MYELOMA
     Dosage: 25 MILLIGRAM
     Route: 048
     Dates: start: 201307

REACTIONS (5)
  - Gallbladder disorder [Unknown]
  - Tooth disorder [Unknown]
  - Weight decreased [Unknown]
  - Oral infection [Unknown]
  - Epistaxis [Unknown]

NARRATIVE: CASE EVENT DATE: 201408
